FAERS Safety Report 19433503 (Version 3)
Quarter: 2021Q3

REPORT INFORMATION
  Report Type: Spontaneous
  Country: IN (occurrence: IN)
  Receive Date: 20210617
  Receipt Date: 20210929
  Transmission Date: 20211014
  Serious: Yes (Other)
  Sender: FDA-Public Use
  Company Number: IN-PFIZER INC-2020388947

PATIENT
  Age: 35 Year
  Sex: Male

DRUGS (12)
  1. BENADRYL [Concomitant]
     Active Substance: DIPHENHYDRAMINE HYDROCHLORIDE
     Dosage: 2 TSP BD
  2. RAZO D [Concomitant]
     Dosage: 1 OB BBF
  3. MUCAINE [ALUMINIUM HYDROXIDE GEL;MAGNESIUM HYDROXIDE;OXETACAINE] [Concomitant]
     Indication: DYSPEPSIA
     Dosage: 2 TSP SOS
  4. CALCIROL [COLECALCIFEROL] [Concomitant]
     Dosage: 60, 000 U, ONCE A WEEK FOR 8 WEEKS
  5. CRIZALK [Suspect]
     Active Substance: CRIZOTINIB
     Dosage: 250 MG, 1X/DAY
     Route: 048
  6. SHELCAL [CALCIUM;COLECALCIFEROL] [Concomitant]
     Active Substance: CALCIUM\CHOLECALCIFEROL
     Dosage: UNK, 1X/DAY
  7. CALCIROL [COLECALCIFEROL] [Concomitant]
     Dosage: 60,000 U, ONCE A MONTH FOR 6 MONTHS
  8. DEXORANGE [CYANOCOBALAMIN;FERRIC AMMONIUM CITRATE;FOLIC ACID] [Concomitant]
     Dosage: 2 TSP DAILY
  9. RAPITUS LS [Concomitant]
     Dosage: 2 TSP SOS/TDS
  10. CRIZALK [Suspect]
     Active Substance: CRIZOTINIB
     Indication: LUNG NEOPLASM MALIGNANT
     Dosage: 250 MG, 2X/DAY
     Route: 048
     Dates: start: 20181221
  11. CRIZALK [Suspect]
     Active Substance: CRIZOTINIB
     Dosage: 250 MG, 2X/DAY
     Route: 048
  12. CRIZALK [Suspect]
     Active Substance: CRIZOTINIB
     Dosage: 250 MG, 2X/DAY (CYCLE 4)
     Route: 048
     Dates: start: 20200520, end: 20200723

REACTIONS (6)
  - Oedema peripheral [Unknown]
  - Pleural thickening [Unknown]
  - Dyspnoea [Unknown]
  - Neoplasm progression [Unknown]
  - Renal impairment [Unknown]
  - Malaise [Unknown]
